FAERS Safety Report 5918740-1 (Version None)
Quarter: 2008Q4

REPORT INFORMATION
  Report Type: 
  Country: None (occurrence: None)
  Receive Date: 20081015
  Receipt Date: 20080815
  Transmission Date: 20090506
  Serious: Yes (Other)
  Sender: FDA-Public Use
  Company Number: US-ASTRAZENECA-2008UW14226

PATIENT
  Age: 61 Year
  Sex: Female

DRUGS (14)
  1. SYMBICORT [Suspect]
     Indication: BRONCHIOLITIS
     Dosage: 160/4.5 UG ONE PUFF TWICE DAILY
     Route: 055
     Dates: start: 20071201, end: 20080601
  2. SYMBICORT [Suspect]
     Indication: SINUSITIS
     Dosage: 160/4.5 UG ONE PUFF TWICE DAILY
     Route: 055
     Dates: start: 20071201, end: 20080601
  3. SYMBICORT [Suspect]
     Indication: CHRONIC OBSTRUCTIVE PULMONARY DISEASE
     Dosage: 160/4.5 UG ONE PUFF TWICE DAILY
     Route: 055
     Dates: start: 20071201, end: 20080601
  4. SYMBICORT [Suspect]
     Indication: ASTHMA
     Dosage: 160/4.5 UG ONE PUFF TWICE DAILY
     Route: 055
     Dates: start: 20071201, end: 20080601
  5. THEOPHYLLINE [Concomitant]
  6. ALBUTEROL [Concomitant]
  7. INTAL [Concomitant]
  8. ATROVENT [Concomitant]
  9. MUCOMYST [Concomitant]
     Dosage: TWO TO THREE TIMES A DAY
  10. VERAPAMIL [Concomitant]
  11. HYDROCHLOROTHIAZIDE [Concomitant]
  12. VITAMIN A [Concomitant]
  13. VITAMIN B [Concomitant]
  14. SODIUM CHLORIDE INJ [Concomitant]
     Dosage: 10%

REACTIONS (9)
  - BLOOD CHOLESTEROL INCREASED [None]
  - BLOOD GLUCOSE INCREASED [None]
  - FLUID RETENTION [None]
  - HEADACHE [None]
  - HERPES ZOSTER [None]
  - HYPERTENSION [None]
  - PAIN [None]
  - PNEUMONIA [None]
  - SINUS DISORDER [None]
